FAERS Safety Report 4862618-1 (Version None)
Quarter: 2005Q4

REPORT INFORMATION
  Report Type: 
  Country: None (occurrence: None)
  Receive Date: 20051221
  Receipt Date: 20051209
  Transmission Date: 20060501
  Serious: Yes (Other)
  Sender: FDA-Public Use
  Company Number: CA-BRISTOL-MYERS SQUIBB COMPANY-13218854

PATIENT
  Age: 88 Year
  Sex: Male

DRUGS (9)
  1. TEQUIN [Suspect]
  2. GLYBURIDE [Suspect]
     Route: 048
  3. ALTACE [Concomitant]
  4. GRAVOL TAB [Concomitant]
  5. HEPARIN SQ [Concomitant]
  6. HUMULIN R [Concomitant]
     Route: 058
  7. LORAZEPAM [Concomitant]
  8. LOSEC [Concomitant]
  9. SEPTRA DS [Concomitant]

REACTIONS (2)
  - BLOOD CREATININE INCREASED [None]
  - HYPOGLYCAEMIA [None]
